FAERS Safety Report 8248585-1 (Version None)
Quarter: 2012Q1

REPORT INFORMATION
  Report Type: 
  Country: None (occurrence: None)
  Receive Date: 20120330
  Receipt Date: 20120322
  Transmission Date: 20120608
  Serious: Yes (Hospitalization)
  Sender: FDA-Public Use
  Company Number: ES-ASTRAZENECA-2012SE20036

PATIENT
  Sex: Female

DRUGS (2)
  1. SEROQUEL [Suspect]
     Route: 048
  2. LITHIUM CARBONATE [Interacting]
     Route: 048

REACTIONS (2)
  - DRUG INTERACTION [None]
  - TOXICITY TO VARIOUS AGENTS [None]
